FAERS Safety Report 11504944 (Version 1)
Quarter: 2015Q3

REPORT INFORMATION
  Report Type: Spontaneous
  Country: US (occurrence: US)
  Receive Date: 20150915
  Receipt Date: 20150915
  Transmission Date: 20151125
  Serious: No
  Sender: FDA-Public Use
  Company Number: US-ROCHE-770000

PATIENT
  Sex: Female
  Weight: 82.6 kg

DRUGS (3)
  1. RIBASPHERE [Suspect]
     Active Substance: RIBAVIRIN
     Indication: HEPATITIS C
     Route: 048
  2. PEGASYS [Suspect]
     Active Substance: PEGINTERFERON ALFA-2A
     Indication: HEPATITIS C
     Route: 058
  3. CLARITIN [Concomitant]
     Active Substance: LORATADINE
     Route: 065

REACTIONS (2)
  - Procedural complication [Unknown]
  - No adverse event [Unknown]
